FAERS Safety Report 15730911 (Version 1)
Quarter: 2018Q4

REPORT INFORMATION
  Report Type: Spontaneous
  Country: US (occurrence: US)
  Receive Date: 20181213
  Receipt Date: 20181213
  Transmission Date: 20190205
  Serious: Yes (Death)
  Sender: FDA-Public Use
  Company Number: None

PATIENT
  Age: 39 Year
  Sex: Female

DRUGS (15)
  1. FLOVENT HFA AER [Concomitant]
  2. DULCOLAX SUP [Concomitant]
  3. CALCITONIN SPR [Concomitant]
  4. POLYETH GLYC POW 3350 NF [Concomitant]
  5. OMEPRAZOLE CAP [Concomitant]
     Active Substance: OMEPRAZOLE SODIUM
  6. MILK OF MAGN SUS [Concomitant]
  7. HYRODYZ HCL TAB [Concomitant]
  8. EFFEXOR XR CAP [Concomitant]
  9. TYLENOL [Concomitant]
     Active Substance: ACETAMINOPHEN
  10. HYDRO/APAP TAB [Concomitant]
  11. DEXAMETHASON TAB [Concomitant]
  12. TARCEVA [Suspect]
     Active Substance: ERLOTINIB HYDROCHLORIDE
     Indication: BONE CANCER
     Route: 048
     Dates: start: 20171101
  13. NICOTINE TD DIS [Concomitant]
  14. MS CONTIN TAB [Concomitant]
  15. FERROUS SULF TAB [Concomitant]

REACTIONS (1)
  - Death [None]

NARRATIVE: CASE EVENT DATE: 20181005
